FAERS Safety Report 16275638 (Version 1)
Quarter: 2019Q2

REPORT INFORMATION
  Report Type: Spontaneous
  Country: US (occurrence: US)
  Receive Date: 20190506
  Receipt Date: 20190506
  Transmission Date: 20190711
  Serious: Yes (Hospitalization, Other)
  Sender: FDA-Public Use
  Company Number: US-SA-2019SA122357

PATIENT
  Sex: Female

DRUGS (1)
  1. DUPIXENT [Suspect]
     Active Substance: DUPILUMAB
     Dosage: 300 MG, QOW
     Route: 058

REACTIONS (7)
  - Dry eye [Unknown]
  - Skin lesion [Unknown]
  - Chronic obstructive pulmonary disease [Unknown]
  - Nasal congestion [Unknown]
  - Tongue disorder [Unknown]
  - Dyspnoea [Unknown]
  - Cataract [Unknown]
